FAERS Safety Report 10037279 (Version 1)
Quarter: 2014Q1

REPORT INFORMATION
  Report Type: Spontaneous
  Country: US (occurrence: None)
  Receive Date: 20140325
  Receipt Date: 20140325
  Transmission Date: 20141002
  Serious: Yes (Disabling, Other)
  Sender: FDA-Public Use
  Company Number: None

PATIENT
  Age: 57 Year
  Sex: Male
  Weight: 90.72 kg

DRUGS (1)
  1. FOSAMAX [Suspect]
     Indication: OSTEONECROSIS
     Route: 048
     Dates: start: 20121206, end: 20130404

REACTIONS (4)
  - Vitamin D decreased [None]
  - Blood calcium decreased [None]
  - Renal failure chronic [None]
  - Bone pain [None]
